FAERS Safety Report 17456334 (Version 1)
Quarter: 2020Q1

REPORT INFORMATION
  Report Type: Spontaneous
  Country: IT (occurrence: IT)
  Receive Date: 20200225
  Receipt Date: 20200225
  Transmission Date: 20200409
  Serious: Yes (Hospitalization, Other)
  Sender: FDA-Public Use
  Company Number: IT-GLAXOSMITHKLINE-IT2020029856

PATIENT
  Age: 73 Year
  Sex: Male

DRUGS (1)
  1. TALAVIR [Suspect]
     Active Substance: VALACYCLOVIR HYDROCHLORIDE
     Indication: INFECTION
     Dosage: 3 G, QD
     Route: 048
     Dates: start: 20200130, end: 20200203

REACTIONS (4)
  - Tremor [Unknown]
  - Medication error [Unknown]
  - Hallucination [Unknown]
  - Balance disorder [Unknown]

NARRATIVE: CASE EVENT DATE: 20200130
